FAERS Safety Report 6685810-2 (Version None)
Quarter: 2010Q2

REPORT INFORMATION
  Report Type: 
  Country: None (occurrence: None)
  Receive Date: 20100419
  Receipt Date: 20100407
  Transmission Date: 20101027
  Serious: Yes (Hospitalization, Other)
  Sender: FDA-Public Use
  Company Number: US-JNJFOC-20090805659

PATIENT
  Age: 69 Year
  Sex: Male

DRUGS (30)
  1. DECITABINE [Suspect]
     Indication: ACUTE MYELOID LEUKAEMIA
     Route: 042
  2. DECITABINE [Suspect]
     Route: 042
  3. DECITABINE [Suspect]
     Route: 042
  4. DECITABINE [Suspect]
     Route: 042
  5. VORINOSTAT [Suspect]
     Indication: ACUTE MYELOID LEUKAEMIA
     Route: 048
  6. VORINOSTAT [Suspect]
     Route: 048
  7. VORINOSTAT [Suspect]
     Route: 048
  8. VORINOSTAT [Suspect]
     Route: 048
  9. LEVOFLOXACIN [Suspect]
     Indication: INFECTION PROPHYLAXIS
     Route: 065
  10. ACYCLOVIR [Suspect]
     Indication: INFECTION PROPHYLAXIS
  11. FLUCONAZOLE [Suspect]
     Indication: INFECTION PROPHYLAXIS
  12. OXYCODONE AND ACETAMINOPHEN [Concomitant]
  13. ACETAMINOPHEN [Concomitant]
  14. ACETAMINOPHEN/HYDROCODONE BITARTRATE [Concomitant]
  15. ALLOPURINOL [Concomitant]
  16. AMLODIPINE BESYLATE [Concomitant]
  17. BUMETANIDE [Concomitant]
  18. CALCIUM [Concomitant]
  19. DOCUSATE SODIUM [Concomitant]
  20. FAMOTIDINE [Concomitant]
  21. FUROSEMIDE [Concomitant]
  22. HYDRALAZINE HCL [Concomitant]
  23. LORAZEPAM [Concomitant]
  24. MEPERIDINE HYDROCHLORIDE [Concomitant]
  25. METOLAZONE [Concomitant]
  26. ONDANSETRON HYDROCHLORIDE [Concomitant]
  27. POTASSIUM CHLORIDE [Concomitant]
  28. SENNA [Concomitant]
  29. SODIUM ACETATE [Concomitant]
  30. SPIRONOLACTONE [Concomitant]

REACTIONS (12)
  - BONE PAIN [None]
  - CLOSTRIDIAL INFECTION [None]
  - DEHYDRATION [None]
  - DRUG INTOLERANCE [None]
  - FEBRILE NEUTROPENIA [None]
  - FUNGAL INFECTION [None]
  - HYPONATRAEMIA [None]
  - MENTAL STATUS CHANGES [None]
  - MUSCLE SPASMS [None]
  - NAUSEA [None]
  - NERVOUS SYSTEM DISORDER [None]
  - STAPHYLOCOCCAL BACTERAEMIA [None]
